FAERS Safety Report 10259126 (Version 1)
Quarter: 2014Q2

REPORT INFORMATION
  Report Type: Spontaneous
  Country: US (occurrence: US)
  Receive Date: 20140625
  Receipt Date: 20140625
  Transmission Date: 20141212
  Serious: No
  Sender: FDA-Public Use
  Company Number: US-ASTELLAS-2013US011700

PATIENT
  Sex: Female

DRUGS (1)
  1. VESICARE [Suspect]
     Indication: MIXED INCONTINENCE
     Route: 048

REACTIONS (1)
  - Inappropriate schedule of drug administration [Unknown]
